FAERS Safety Report 9464658 (Version 2)
Quarter: 2013Q3

REPORT INFORMATION
  Report Type: Spontaneous
  Country: FR (occurrence: FR)
  Receive Date: 20130819
  Receipt Date: 20130819
  Transmission Date: 20140515
  Serious: Yes (Death, Life-Threatening)
  Sender: FDA-Public Use
  Company Number: FR-B.I. PHARMACEUTICALS,INC./RIDGEFIELD-2013-FF-01686FF

PATIENT
  Age: 86 Year
  Sex: Male

DRUGS (1)
  1. PRADAXA [Suspect]
     Indication: ATRIAL FIBRILLATION
     Dosage: 300 MG
     Route: 048
     Dates: start: 20130425, end: 20130524

REACTIONS (2)
  - Respiratory distress [Fatal]
  - Subdural haematoma [Not Recovered/Not Resolved]
